FAERS Safety Report 12431190 (Version 1)
Quarter: 2016Q2

REPORT INFORMATION
  Report Type: Spontaneous
  Country: FR (occurrence: FR)
  Receive Date: 20160603
  Receipt Date: 20160603
  Transmission Date: 20160815
  Serious: Yes (Hospitalization)
  Sender: FDA-Public Use
  Company Number: FR-ROCHE-1768766

PATIENT
  Age: 57 Year
  Sex: Female

DRUGS (9)
  1. RULID [Concomitant]
     Active Substance: ROXITHROMYCIN
     Route: 065
  2. BACTRIM [Concomitant]
     Active Substance: SULFAMETHOXAZOLE\TRIMETHOPRIM
     Route: 065
  3. INNOHEP [Concomitant]
     Active Substance: TINZAPARIN SODIUM
     Route: 065
  4. PONATINIB [Suspect]
     Active Substance: PONATINIB
     Indication: ACUTE LYMPHOCYTIC LEUKAEMIA
     Route: 048
     Dates: start: 20160511, end: 20160513
  5. CYCLOPHOSPHAMIDE. [Suspect]
     Active Substance: CYCLOPHOSPHAMIDE
     Indication: ACUTE LYMPHOCYTIC LEUKAEMIA
     Route: 042
     Dates: start: 20160511
  6. LEDERFOLINE [Concomitant]
     Active Substance: LEUCOVORIN CALCIUM
     Dosage: 1 TABLET
     Route: 065
  7. ZELITREX [Concomitant]
     Active Substance: VALACYCLOVIR HYDROCHLORIDE
     Route: 065
  8. MABTHERA [Suspect]
     Active Substance: RITUXIMAB
     Indication: ACUTE LYMPHOCYTIC LEUKAEMIA
     Route: 065
     Dates: start: 20160511, end: 20160513
  9. GLIVEC [Concomitant]
     Active Substance: IMATINIB MESYLATE
     Route: 065

REACTIONS (3)
  - Ventricular hypokinesia [Recovering/Resolving]
  - Brain natriuretic peptide increased [Recovering/Resolving]
  - Troponin increased [Recovered/Resolved]

NARRATIVE: CASE EVENT DATE: 20160513
